FAERS Safety Report 23097714 (Version 3)
Quarter: 2023Q4

REPORT INFORMATION
  Report Type: Report from Study
  Country: IL (occurrence: IL)
  Receive Date: 20231023
  Receipt Date: 20231121
  Transmission Date: 20240109
  Serious: Yes (Hospitalization)
  Sender: FDA-Public Use
  Company Number: IL-GENMAB-2023-01936

PATIENT
  Age: 72 Year
  Sex: Female
  Weight: 63.8 kg

DRUGS (29)
  1. EPCORITAMAB [Suspect]
     Active Substance: EPCORITAMAB
     Indication: Diffuse large B-cell lymphoma stage II
     Dosage: C1D1
     Route: 058
     Dates: start: 20211111, end: 20211111
  2. EPCORITAMAB [Suspect]
     Active Substance: EPCORITAMAB
     Dosage: C1D8
     Route: 058
     Dates: start: 20211118, end: 20211118
  3. EPCORITAMAB [Suspect]
     Active Substance: EPCORITAMAB
     Dosage: C1D15-C3D22
     Route: 058
     Dates: start: 20211125, end: 20220301
  4. EPCORITAMAB [Suspect]
     Active Substance: EPCORITAMAB
     Dosage: C4D1-C9D15
     Route: 058
     Dates: start: 20220310, end: 20220809
  5. EPCORITAMAB [Suspect]
     Active Substance: EPCORITAMAB
     Dosage: C10D1-C12D1
     Route: 058
     Dates: start: 20220823, end: 20221120
  6. EPCORITAMAB [Suspect]
     Active Substance: EPCORITAMAB
     Dosage: RP1D1
     Route: 058
     Dates: start: 20230123, end: 20230123
  7. EPCORITAMAB [Suspect]
     Active Substance: EPCORITAMAB
     Dosage: RP1D8
     Route: 058
     Dates: start: 20230130, end: 20230130
  8. EPCORITAMAB [Suspect]
     Active Substance: EPCORITAMAB
     Dosage: RP1D15-RP1D22
     Route: 058
     Dates: start: 20230206, end: 20230213
  9. EPCORITAMAB [Suspect]
     Active Substance: EPCORITAMAB
     Dosage: C13D1-C18D1
     Route: 058
     Dates: start: 20230220, end: 20230814
  10. EPCORITAMAB [Suspect]
     Active Substance: EPCORITAMAB
     Dosage: RP2D1
     Route: 058
     Dates: start: 20231113, end: 20231113
  11. PROTHIAZINE [Concomitant]
     Indication: Premedication
     Dosage: 50 MILLIGRAM, SINGLE
     Route: 048
     Dates: start: 20231113, end: 20231113
  12. ACETAMINOPHEN [Concomitant]
     Active Substance: ACETAMINOPHEN
     Indication: Premedication
     Dosage: 1000 MILLIGRAM, SINGLE
     Route: 048
     Dates: start: 20231113, end: 20231113
  13. DEXAMETHASONE [Concomitant]
     Active Substance: DEXAMETHASONE
     Indication: Prophylaxis
     Dosage: 15 MILLIGRAM, QD
     Route: 048
     Dates: start: 20231113, end: 20231113
  14. DIFLUCAN [Concomitant]
     Active Substance: FLUCONAZOLE
     Indication: Prophylaxis
     Dosage: 200 MILLIGRAM, QD
     Route: 048
     Dates: start: 20211230
  15. DIGOXIN [Concomitant]
     Active Substance: DIGOXIN
     Indication: Atrial fibrillation
     Dosage: 0.5 MILLIGRAM, SINGLE
     Route: 042
     Dates: start: 20231002, end: 20231002
  16. ALLOPURINOL [Concomitant]
     Active Substance: ALLOPURINOL
     Indication: Prophylaxis
     Dosage: 300 MILLIGRAM, QD
     Route: 048
     Dates: start: 20211125
  17. CANDOR [Concomitant]
     Dosage: 8 MILLIGRAM, QD
     Route: 048
  18. BISOPROLOL FUMARATE [Concomitant]
     Active Substance: BISOPROLOL FUMARATE
     Dosage: 245 MILLIGRAM, BID
     Route: 048
  19. ELTROMBOPAG OLAMINE [Concomitant]
     Active Substance: ELTROMBOPAG OLAMINE
     Dosage: 50 MILLIGRAM, QD
     Route: 048
     Dates: start: 20230718
  20. CEFUROXIME [Concomitant]
     Active Substance: CEFUROXIME
     Indication: Upper respiratory tract infection
     Dosage: 500 MILLIGRAM, BID
     Route: 048
     Dates: start: 20230814
  21. ZITHROMAX [Concomitant]
     Active Substance: AZITHROMYCIN DIHYDRATE
     Indication: Septic shock
     Dosage: 500 MILLIGRAM, SINGLE
     Route: 042
     Dates: start: 20230913, end: 20230913
  22. ZITHROMAX [Concomitant]
     Active Substance: AZITHROMYCIN DIHYDRATE
     Dosage: 500 MILLIGRAM, SINGLE
     Route: 042
     Dates: start: 20230913, end: 20230913
  23. ENOXAPARIN SODIUM [Concomitant]
     Active Substance: ENOXAPARIN SODIUM
     Indication: Prophylaxis
     Dosage: 20 MILLIGRAM, QD
     Route: 058
     Dates: start: 20230519
  24. CEFTRIAXONE SODIUM [Concomitant]
     Active Substance: CEFTRIAXONE SODIUM
     Indication: Septic shock
     Dosage: 1 GRAM, SINGLE
     Route: 042
     Dates: start: 20230913, end: 20230913
  25. PIPERACILLIN SODIUM\TAZOBACTAM SODIUM [Concomitant]
     Active Substance: PIPERACILLIN SODIUM\TAZOBACTAM SODIUM
     Indication: Septic shock
     Dosage: 4.5 GRAM, TID
     Route: 042
     Dates: start: 20230913, end: 20230922
  26. PERFALGAN [Concomitant]
     Active Substance: ACETAMINOPHEN
     Indication: Septic shock
     Dosage: 1000 MILLIGRAM, SINGLE
     Route: 042
     Dates: start: 20230913, end: 20230913
  27. VERAPAMIL [Concomitant]
     Active Substance: VERAPAMIL HYDROCHLORIDE
     Indication: Atrial fibrillation
     Dosage: 5 MILLIGRAM, SINGLE
     Route: 042
     Dates: start: 20231002, end: 20231002
  28. AMIODARONE [Concomitant]
     Active Substance: AMIODARONE
     Indication: Atrial fibrillation
     Dosage: 600 MILLIGRAM, QD
     Route: 048
     Dates: start: 20231004, end: 20231011
  29. AMIODARONE [Concomitant]
     Active Substance: AMIODARONE
     Dosage: 200 MILLIGRAM, QD
     Route: 048
     Dates: start: 20231012

REACTIONS (2)
  - Pneumonia viral [Recovered/Resolved]
  - Urinary tract infection [Recovered/Resolved]

NARRATIVE: CASE EVENT DATE: 20231011
